FAERS Safety Report 10728802 (Version 2)
Quarter: 2015Q1

REPORT INFORMATION
  Report Type: Spontaneous
  Country: PL (occurrence: PL)
  Receive Date: 20150122
  Receipt Date: 20150310
  Transmission Date: 20150721
  Serious: Yes (Death, Life-Threatening, Hospitalization, Other)
  Sender: FDA-Public Use
  Company Number: PHHY2015PL006117

PATIENT
  Age: 18 Year
  Sex: Male
  Weight: 56 kg

DRUGS (1)
  1. EXJADE [Suspect]
     Active Substance: DEFERASIROX
     Indication: ACUTE LYMPHOCYTIC LEUKAEMIA
     Dosage: 1250 MG, QD
     Route: 065

REACTIONS (1)
  - Acute lymphocytic leukaemia recurrent [Fatal]

NARRATIVE: CASE EVENT DATE: 20141221
